FAERS Safety Report 24889252 (Version 7)
Quarter: 2025Q4

REPORT INFORMATION
  Report Type: Report from Study
  Country: US (occurrence: US)
  Receive Date: 20250127
  Receipt Date: 20251126
  Transmission Date: 20260117
  Serious: Yes (Other)
  Sender: NOVARTIS
  Company Number: US-002147023-NVSC2024US243854

PATIENT
  Age: 80 Year
  Sex: Female

DRUGS (4)
  1. LEQVIO [Suspect]
     Active Substance: INCLISIRAN SODIUM
     Indication: Product used for unknown indication
     Dosage: UNK
     Route: 058
     Dates: start: 20240930
  2. LEQVIO [Suspect]
     Active Substance: INCLISIRAN SODIUM
     Dosage: UNK (2ND INJECTION)
     Route: 058
     Dates: start: 20241230
  3. LORAZEPAM [Concomitant]
     Active Substance: LORAZEPAM
     Indication: Anticoagulant therapy
     Dosage: UNK
     Route: 065
     Dates: start: 2000
  4. WARFARIN [Concomitant]
     Active Substance: WARFARIN
     Indication: Product used for unknown indication
     Dosage: UNK
     Route: 065

REACTIONS (19)
  - Autoimmune disorder [Not Recovered/Not Resolved]
  - Concomitant disease aggravated [Unknown]
  - Cerebrovascular accident [Unknown]
  - Memory impairment [Unknown]
  - Pain [Unknown]
  - Blood triglycerides increased [Unknown]
  - Low density lipoprotein increased [Unknown]
  - High density lipoprotein increased [Unknown]
  - Arthritis [Unknown]
  - Tibia fracture [Unknown]
  - Insomnia [Unknown]
  - Pain in extremity [Unknown]
  - Myalgia [Unknown]
  - Blood cholesterol abnormal [Unknown]
  - Asthenia [Unknown]
  - Upper limb fracture [Unknown]
  - Fall [Unknown]
  - Arthralgia [Recovering/Resolving]
  - Aphasia [Unknown]

NARRATIVE: CASE EVENT DATE: 20241217
